FAERS Safety Report 21293925 (Version 1)
Quarter: 2022Q3

REPORT INFORMATION
  Report Type: Report from Study
  Country: BR (occurrence: BR)
  Receive Date: 20220905
  Receipt Date: 20220905
  Transmission Date: 20221026
  Serious: Yes (Other)
  Sender: FDA-Public Use
  Company Number: BR-NOVARTISPH-NVSC2022BR074086

PATIENT
  Age: 21 Year
  Sex: Female

DRUGS (2)
  1. COSENTYX [Suspect]
     Active Substance: SECUKINUMAB
     Indication: Psoriasis
     Dosage: 300 MG (INDUCTION DOSES)
     Route: 065
     Dates: start: 20220311
  2. COSENTYX [Suspect]
     Active Substance: SECUKINUMAB
     Dosage: 300 MG (SECOND DOSE)
     Route: 065
     Dates: start: 20220318

REACTIONS (4)
  - Haematochezia [Unknown]
  - Pain in extremity [Recovered/Resolved]
  - Injection site haemorrhage [Recovered/Resolved]
  - Petechiae [Recovered/Resolved]

NARRATIVE: CASE EVENT DATE: 20220318
